FAERS Safety Report 8218155-X (Version None)
Quarter: 2012Q1

REPORT INFORMATION
  Report Type: 
  Country: None (occurrence: None)
  Receive Date: 20120319
  Receipt Date: 20120312
  Transmission Date: 20120608
  Serious: Yes (Other)
  Sender: FDA-Public Use
  Company Number: BR-ABBOTT-12P-020-0914658-00

PATIENT
  Sex: Female
  Weight: 74 kg

DRUGS (6)
  1. AMLODIPINE BESYLATE [Concomitant]
     Indication: BLOOD PRESSURE
     Route: 048
  2. OXYBUTYNIN [Concomitant]
     Indication: URINARY RETENTION
     Dosage: 2 TABLETS PER DAY
     Route: 048
  3. METHOTREXATE [Suspect]
     Indication: ANKYLOSING SPONDYLITIS
     Dosage: 10 TABLETS PER WEEK
     Dates: end: 20110801
  4. PREDNISONE TAB [Concomitant]
     Indication: MUSCULOSKELETAL PAIN
     Route: 048
  5. LEVOTHYROXINE SODIUM [Concomitant]
     Indication: HYPOTHYROIDISM
     Route: 048
  6. HUMIRA [Suspect]
     Indication: ANKYLOSING SPONDYLITIS
     Dates: start: 20110113

REACTIONS (9)
  - FATIGUE [None]
  - SOMNOLENCE [None]
  - DYSPNOEA [None]
  - IMMUNODEFICIENCY [None]
  - TUBERCULOSIS [None]
  - INFECTION [None]
  - PLEURAL EFFUSION [None]
  - ASTHENIA [None]
  - UNEVALUABLE EVENT [None]
